FAERS Safety Report 5139818-9 (Version None)
Quarter: 2006Q4

REPORT INFORMATION
  Report Type: 
  Country: None (occurrence: None)
  Receive Date: 20061025
  Receipt Date: 20061025
  Transmission Date: 20070319
  Serious: Yes (Death)
  Sender: FDA-Public Use
  Company Number: None

PATIENT
  Age: 2 Year
  Sex: Male
  Weight: 12.2471 kg

DRUGS (2)
  1. FER-GEN-SOL 15MG/.6ML [Suspect]
     Indication: ANAEMIA
     Dosage: 3ML 1 TIME PER DAY PO
     Route: 048
     Dates: start: 20061021, end: 20061022
  2. FER-IN-SOL 75MG/.6ML ENFAMIL [Suspect]
     Indication: ANAEMIA
     Dosage: .6ML 1 TIME PER DAY PO
     Route: 048
     Dates: start: 20061023

REACTIONS (3)
  - DRUG DISPENSING ERROR [None]
  - INCORRECT DOSE ADMINISTERED [None]
  - MEDICATION ERROR [None]
